FAERS Safety Report 8920869 (Version 1)
Quarter: 2012Q4

REPORT INFORMATION
  Report Type: 
  Country: US (occurrence: US)
  Receive Date: 20121121
  Receipt Date: 20121121
  Transmission Date: 20130627
  Serious: Yes (Hospitalization)
  Sender: FDA-Public Use
  Company Number: US-GLAXOSMITHKLINE-A0886591A

PATIENT
  Age: 62 Year
  Sex: Female
  Weight: 70.5 kg

DRUGS (2)
  1. AVANDIA [Suspect]
     Indication: DIABETES MELLITUS
     Route: 048
     Dates: end: 20051101
  2. AVANDAMET [Suspect]
     Indication: DIABETES MELLITUS
     Route: 048

REACTIONS (3)
  - Cardiac failure [Not Recovered/Not Resolved]
  - Implantable defibrillator insertion [Unknown]
  - Cardiac pacemaker insertion [Unknown]
